FAERS Safety Report 14207797 (Version 3)
Quarter: 2018Q1

REPORT INFORMATION
  Report Type: Spontaneous
  Country: US (occurrence: US)
  Receive Date: 20171121
  Receipt Date: 20180219
  Transmission Date: 20180508
  Serious: Yes (Hospitalization)
  Sender: FDA-Public Use
  Company Number: US-JNJFOC-20171115946

PATIENT
  Age: 78 Year
  Sex: Male

DRUGS (16)
  1. CEDAX [Concomitant]
     Active Substance: CEFTIBUTEN DIHYDRATE
  2. LEVOTHYROXINE. [Concomitant]
     Active Substance: LEVOTHYROXINE
  3. ACYCLOVIR. [Concomitant]
     Active Substance: ACYCLOVIR
  4. MULTIVITAMINS [Concomitant]
     Active Substance: VITAMINS
  5. POLYETHYLENE GLYCOL [Concomitant]
     Active Substance: POLYETHYLENE GLYCOLS
  6. SENNA [Concomitant]
     Active Substance: SENNA LEAF\SENNOSIDES\SENNOSIDES A AND B
  7. NYSTATIN. [Concomitant]
     Active Substance: NYSTATIN
  8. IMBRUVICA [Suspect]
     Active Substance: IBRUTINIB
     Indication: CHRONIC LYMPHOCYTIC LEUKAEMIA
     Route: 048
     Dates: start: 20170414, end: 201801
  9. FLUCONAZOLE. [Concomitant]
     Active Substance: FLUCONAZOLE
  10. NITROGLYCERIN. [Concomitant]
     Active Substance: NITROGLYCERIN
  11. OXYCODONE [Concomitant]
     Active Substance: OXYCODONE
  12. LIDEX [Concomitant]
     Active Substance: FLUOCINONIDE
  13. TRIAMCINOLONE ACETONIDE. [Concomitant]
     Active Substance: TRIAMCINOLONE ACETONIDE
  14. COUMADIN [Concomitant]
     Active Substance: WARFARIN SODIUM
  15. DEBROX [Concomitant]
     Active Substance: CARBAMIDE PEROXIDE
  16. DOCUSATE SODIUM. [Concomitant]
     Active Substance: DOCUSATE SODIUM

REACTIONS (4)
  - Incorrect dose administered [Unknown]
  - Abdominal pain upper [Unknown]
  - Urine odour abnormal [Unknown]
  - Off label use [Unknown]

NARRATIVE: CASE EVENT DATE: 20170414
